FAERS Safety Report 20918713 (Version 2)
Quarter: 2023Q4

REPORT INFORMATION
  Report Type: Spontaneous
  Country: SK (occurrence: SK)
  Receive Date: 20220606
  Receipt Date: 20231214
  Transmission Date: 20240109
  Serious: Yes (Death, Other)
  Sender: FDA-Public Use
  Company Number: SK-SUN PHARMACEUTICAL INDUSTRIES LTD-2021R1-304337

PATIENT
  Age: 33 Year
  Sex: Female

DRUGS (8)
  1. FLUCONAZOLE [Suspect]
     Active Substance: FLUCONAZOLE
     Indication: Pneumonia
     Dosage: UNK
     Route: 065
  2. FLUCONAZOLE [Suspect]
     Active Substance: FLUCONAZOLE
     Indication: Acute respiratory failure
  3. FLUCONAZOLE [Suspect]
     Active Substance: FLUCONAZOLE
     Indication: Antifungal treatment
  4. ACETAMINOPHEN [Suspect]
     Active Substance: ACETAMINOPHEN
     Indication: Pyrexia
     Dosage: 1000 MILLIGRAM, DAILY
     Route: 065
  5. VANCOMYCIN HYDROCHLORIDE [Suspect]
     Active Substance: VANCOMYCIN HYDROCHLORIDE
     Indication: Pancytopenia
     Route: 065
  6. AZATHIOPRINE [Suspect]
     Active Substance: AZATHIOPRINE
     Indication: COVID-19
     Route: 065
  7. HUMAN IMMUNOGLOBULIN G [Suspect]
     Active Substance: HUMAN IMMUNOGLOBULIN G
     Indication: Product used for unknown indication
     Route: 042
  8. LINEZOLID [Suspect]
     Active Substance: LINEZOLID
     Indication: COVID-19
     Dosage: UNK
     Route: 065

REACTIONS (26)
  - Multiple organ dysfunction syndrome [Fatal]
  - Hepatic failure [Fatal]
  - Septic shock [Fatal]
  - Transaminases increased [Unknown]
  - Drug-induced liver injury [Fatal]
  - Myelosuppression [Fatal]
  - Malaise [Unknown]
  - Oxygen saturation decreased [Unknown]
  - Cholestasis [Unknown]
  - Fibrin D dimer increased [Unknown]
  - Respiratory disorder [Unknown]
  - Pleural effusion [Unknown]
  - Coronavirus infection [Fatal]
  - Mediastinal effusion [Unknown]
  - Candida infection [Unknown]
  - Cardiac disorder [Unknown]
  - Blood bilirubin increased [Unknown]
  - Pericardial effusion [Unknown]
  - Disease progression [Fatal]
  - Lymphopenia [Unknown]
  - Hepatosplenomegaly [Unknown]
  - Pneumonia [Unknown]
  - Dysbiosis [Fatal]
  - Atrioventricular block complete [Unknown]
  - Gastrointestinal disorder [Fatal]
  - Pancytopenia [Fatal]
